FAERS Safety Report 6372309-6 (Version None)
Quarter: 2009Q3

REPORT INFORMATION
  Report Type: 
  Country: None (occurrence: None)
  Receive Date: 20090924
  Receipt Date: 20070307
  Transmission Date: 20100115
  Serious: Yes (Hospitalization)
  Sender: FDA-Public Use
  Company Number: US-ASTRAZENECA-2008UW22250

PATIENT
  Age: 14918 Day
  Sex: Female
  Weight: 81.6 kg

DRUGS (36)
  1. SEROQUEL [Suspect]
     Dosage: 25 MG, 100 MG, 200 MG
     Route: 048
     Dates: start: 20040201
  2. ALLOPURINOL [Concomitant]
     Dosage: 100 MG, 300 MG
  3. ZANTAC [Concomitant]
  4. PREMARIN [Concomitant]
  5. MOBIC [Concomitant]
  6. EFFEXOR [Concomitant]
  7. ZOMIG [Concomitant]
  8. ATARAX [Concomitant]
  9. ESTRADIOL [Concomitant]
  10. LEVAQUIN [Concomitant]
  11. MUCINEX [Concomitant]
  12. ACETIC ACID/ALUMINUM [Concomitant]
  13. ASTELIN [Concomitant]
  14. PAROXETINE HCL [Concomitant]
  15. NAPROXEN [Concomitant]
  16. HYDROCODONE BITARTRATE AND ACETAMINOPHEN [Concomitant]
     Dosage: 7.5/500
  17. COLCHICINE [Concomitant]
  18. CYANOCOBALAMIN [Concomitant]
     Dosage: 1000 MCG/ML
  19. IBUPROFEN [Concomitant]
  20. AMOXICILLIN AND CLAVULANATE POTASSIUM [Concomitant]
     Dosage: 875-125 MG
  21. PROMETHAZINE [Concomitant]
  22. PENICILLIN VK [Concomitant]
  23. METHYLPREDNISOLONE 4MG TAB [Concomitant]
     Dosage: 4 MG DOSE PACK
     Dates: start: 20040728
  24. TRAMADOL HCL [Concomitant]
  25. RANITIDINE [Concomitant]
  26. AMITRIPTYLINE [Concomitant]
  27. PHENAZOPYRIDINE HCL TAB [Concomitant]
  28. AMBIEN [Concomitant]
  29. SULFAMETHOXAZOLE [Concomitant]
  30. FLUTICASONE [Concomitant]
  31. AZITHROMYCIN [Concomitant]
  32. FLUCONAZOLE [Concomitant]
  33. CLONAZEPAM [Concomitant]
  34. MIRTAZAPINE [Concomitant]
  35. OMNICEF [Concomitant]
  36. PROPOXYPHENE HCL CAP [Concomitant]

REACTIONS (3)
  - PERSONALITY DISORDER [None]
  - SCHIZOAFFECTIVE DISORDER [None]
  - TYPE 2 DIABETES MELLITUS [None]
